FAERS Safety Report 6402738-3 (Version None)
Quarter: 2009Q4

REPORT INFORMATION
  Report Type: 
  Country: None (occurrence: None)
  Receive Date: 20091013
  Receipt Date: 20090831
  Transmission Date: 20100525
  Serious: Yes (Other)
  Sender: FDA-Public Use
  Company Number: 2009AP003517

PATIENT
  Age: 46 Year
  Sex: Female

DRUGS (1)
  1. MIDAZOLAM HYDROCHLORIDE SYRUP [Suspect]
     Indication: LIPOSUCTION
     Dosage: 16 MG; ; PO
     Route: 048

REACTIONS (5)
  - AGITATION [None]
  - DYSKINESIA [None]
  - PARADOXICAL DRUG REACTION [None]
  - RESTLESSNESS [None]
  - SOMNOLENCE [None]
